FAERS Safety Report 19813597 (Version 4)
Quarter: 2022Q1

REPORT INFORMATION
  Report Type: Report from Study
  Country: CA (occurrence: CA)
  Receive Date: 20210909
  Receipt Date: 20220215
  Transmission Date: 20220424
  Serious: Yes (Other)
  Sender: FDA-Public Use
  Company Number: CA-TAKEDA-2021TUS043425

PATIENT
  Age: 60 Year
  Sex: Male

DRUGS (10)
  1. VEDOLIZUMAB [Suspect]
     Active Substance: VEDOLIZUMAB
     Indication: Crohn^s disease
     Dosage: 300 MILLIGRAM
     Route: 042
     Dates: start: 20210510
  2. VEDOLIZUMAB [Suspect]
     Active Substance: VEDOLIZUMAB
     Dosage: 300 MILLIGRAM
     Route: 042
  3. PREDNISONE [Concomitant]
     Active Substance: PREDNISONE
     Dosage: UNK
  4. PREGABALIN [Concomitant]
     Active Substance: PREGABALIN
     Dosage: UNK
  5. EFFEXOR [Concomitant]
     Active Substance: VENLAFAXINE HYDROCHLORIDE
     Dosage: UNK
  6. AMITRIPTYLINE [Concomitant]
     Active Substance: AMITRIPTYLINE
     Dosage: UNK
  7. ATARAX [Concomitant]
     Active Substance: HYDROXYZINE HYDROCHLORIDE
     Dosage: UNK
  8. DEXILANT [Concomitant]
     Active Substance: DEXLANSOPRAZOLE
     Dosage: UNK
  9. ELIQUIS [Concomitant]
     Active Substance: APIXABAN
     Indication: Cerebral thrombosis
     Dosage: 2.5 MILLIGRAM, BID
  10. ELIQUIS [Concomitant]
     Active Substance: APIXABAN
     Indication: Pulmonary embolism

REACTIONS (10)
  - Diverticulitis [Unknown]
  - Aortic aneurysm [Unknown]
  - Gastrointestinal inflammation [Unknown]
  - Abnormal faeces [Unknown]
  - Gastrooesophageal reflux disease [Unknown]
  - Sleep disorder [Unknown]
  - Abdominal pain [Unknown]
  - Pain [Unknown]
  - Headache [Unknown]
  - Therapeutic product effect decreased [Unknown]
